FAERS Safety Report 5780918-8 (Version None)
Quarter: 2008Q2

REPORT INFORMATION
  Report Type: 
  Country: None (occurrence: None)
  Receive Date: 20080620
  Receipt Date: 20080530
  Transmission Date: 20081010
  Serious: Yes (Death)
  Sender: FDA-Public Use
  Company Number: US-GILEAD-2008-0016986

PATIENT
  Sex: Female

DRUGS (10)
  1. LETAIRIS [Suspect]
     Indication: PULMONARY HYPERTENSION
     Route: 048
  2. ASA LOW DOSE [Concomitant]
     Route: 048
  3. NEXIUM [Concomitant]
     Route: 048
  4. DIOVAN [Concomitant]
  5. TOPROL-XL [Concomitant]
     Route: 048
  6. REVATIO [Concomitant]
     Route: 048
  7. REMERON [Concomitant]
     Route: 048
  8. TRAMADOL HCL [Concomitant]
     Route: 048
  9. ALDACTONE [Concomitant]
     Route: 048
  10. SPIRONOLACT [Concomitant]
     Route: 048

REACTIONS (1)
  - DEATH [None]
